FAERS Safety Report 8238658-1 (Version None)
Quarter: 2012Q1

REPORT INFORMATION
  Report Type: 
  Country: None (occurrence: None)
  Receive Date: 20120327
  Receipt Date: 20120319
  Transmission Date: 20120608
  Serious: Yes (Hospitalization)
  Sender: FDA-Public Use
  Company Number: US-ASTRAZENECA-2012SE19210

PATIENT
  Sex: Female

DRUGS (2)
  1. SYMBICORT [Suspect]
     Dosage: 160/4.5 UGTWO PUFFS TWICE A DAY
     Route: 055
  2. SYMBICORT [Suspect]
     Dosage: 160/4.5 UG EVERY 12 HOURS
     Route: 055

REACTIONS (2)
  - DRUG PRESCRIBING ERROR [None]
  - PNEUMONIA [None]
